FAERS Safety Report 23481671 (Version 1)
Quarter: 2024Q1

REPORT INFORMATION
  Report Type: Spontaneous
  Country: US (occurrence: None)
  Receive Date: 20240202
  Receipt Date: 20240202
  Transmission Date: 20240410
  Serious: Yes (Disabling, Other)
  Sender: FDA-Public Use
  Company Number: None

PATIENT
  Age: 45 Year
  Sex: Female
  Weight: 81 kg

DRUGS (3)
  1. GAZYVA [Suspect]
     Active Substance: OBINUTUZUMAB
     Indication: Lymphoma
     Dosage: OTHER QUANTITY : 1 INJECTION(S);?OTHER FREQUENCY : 1;?
     Route: 042
     Dates: start: 202202, end: 20240123
  2. NOVOLOG [Concomitant]
     Active Substance: INSULIN ASPART
  3. stool softner [Concomitant]

REACTIONS (9)
  - Hernia repair [None]
  - Hypersensitivity [None]
  - Conjunctivitis [None]
  - Dry eye [None]
  - Vision blurred [None]
  - Dysphonia [None]
  - Dysphonia [None]
  - Quality of life decreased [None]
  - Neuropathy peripheral [None]

NARRATIVE: CASE EVENT DATE: 20220201
